FAERS Safety Report 9201722 (Version 2)
Quarter: 2013Q2

REPORT INFORMATION
  Report Type: Spontaneous
  Country: CA (occurrence: None)
  Receive Date: 20130327
  Receipt Date: 20130401
  Transmission Date: 20140414
  Serious: Yes (Other)
  Sender: FDA-Public Use
  Company Number: 2013-04971

PATIENT
  Age: 16 Year
  Sex: Male
  Weight: 85 kg

DRUGS (2)
  1. LORAZEPAM [Suspect]
     Indication: PRODUCT USED FOR UNKNOWN INDICATION
     Dosage: UNKNOWN,UNKNOWN, UNKNOWN
  2. ACETAMINOPHEN (UNKNOWN) (ACETAMINOPHEN) UNK, UNKUNK [Suspect]
     Indication: PRODUCT USED FOR UNKNOWN INDICATION
     Dosage: UNKNOWN

REACTIONS (7)
  - Intentional drug misuse [None]
  - Persecutory delusion [None]
  - Grandiosity [None]
  - Thought insertion [None]
  - Thought withdrawal [None]
  - Neologism [None]
  - Drug abuse [None]
